FAERS Safety Report 18321184 (Version 1)
Quarter: 2020Q3

REPORT INFORMATION
  Report Type: Spontaneous
  Country: IN (occurrence: IN)
  Receive Date: 20200928
  Receipt Date: 20200928
  Transmission Date: 20201103
  Serious: Yes (Death, Hospitalization, Other)
  Sender: FDA-Public Use
  Company Number: IN-GILEAD-2020-0495952

PATIENT
  Age: 45 Year
  Sex: Female

DRUGS (7)
  1. EFAVIRENZ. [Concomitant]
     Active Substance: EFAVIRENZ
  2. CALCIUM [Concomitant]
     Active Substance: CALCIUM
  3. VIREAD [Suspect]
     Active Substance: TENOFOVIR DISOPROXIL FUMARATE
     Indication: HIV INFECTION
     Dosage: 300 MG, QD
     Route: 065
     Dates: start: 201408
  4. VITAMIN D NOS [Concomitant]
     Active Substance: VITAMIN D NOS
  5. ABACAVIR. [Concomitant]
     Active Substance: ABACAVIR
  6. LAMIVUDINE. [Concomitant]
     Active Substance: LAMIVUDINE
  7. TERIPARATIDE [Concomitant]
     Active Substance: TERIPARATIDE

REACTIONS (5)
  - Sepsis [Fatal]
  - Renal disorder [Fatal]
  - Fanconi syndrome acquired [Unknown]
  - Renal failure [Unknown]
  - Femur fracture [Unknown]
